FAERS Safety Report 21799657 (Version 3)
Quarter: 2023Q2

REPORT INFORMATION
  Report Type: Report from Study
  Country: US (occurrence: US)
  Receive Date: 20221230
  Receipt Date: 20230619
  Transmission Date: 20230721
  Serious: Yes (Hospitalization, Other)
  Sender: FDA-Public Use
  Company Number: US-ABBVIE-4220198

PATIENT
  Sex: Female
  Weight: 62 kg

DRUGS (9)
  1. HUMIRA [Suspect]
     Active Substance: ADALIMUMAB
     Indication: Rheumatoid arthritis
     Dosage: 40 MILLIGRAM / 0.4 MILLILITERS,  FORM STRENGTH: 40 MILLIGRAM
     Route: 058
  2. HUMIRA [Suspect]
     Active Substance: ADALIMUMAB
     Indication: Psoriatic arthropathy
     Route: 058
  3. HUMIRA [Suspect]
     Active Substance: ADALIMUMAB
     Dosage: FORM STRENGTH: 40 MILLIGRAM, CITRATE FREE
     Route: 058
     Dates: start: 202301
  4. HUMIRA [Suspect]
     Active Substance: ADALIMUMAB
     Dosage: 40 MILLIGRAM/ 0.8 MILLILITERS, FORM STRENGTH: 40 MILLIGRAM
     Route: 058
  5. ROSUVASTATIN [Concomitant]
     Active Substance: ROSUVASTATIN
     Indication: Blood cholesterol increased
     Dosage: FORM STRENGTH: 5 MILLIGRAM
     Route: 065
  6. DILTIAZEM [Concomitant]
     Active Substance: DILTIAZEM
     Indication: Hypertension
     Route: 065
  7. RESTASIS [Concomitant]
     Active Substance: CYCLOSPORINE
     Indication: Dry eye
     Route: 065
  8. TOPIRAMATE [Concomitant]
     Active Substance: TOPIRAMATE
     Indication: Sleep disorder therapy
     Route: 065
  9. RAMIPRIL [Concomitant]
     Active Substance: RAMIPRIL
     Indication: Hypertension
     Dosage: FORM STRENGTH: 5 MILLIGRAM
     Route: 065

REACTIONS (11)
  - Cerebrovascular accident [Recovered/Resolved with Sequelae]
  - Ankle fracture [Recovering/Resolving]
  - Speech disorder [Not Recovered/Not Resolved]
  - Drug ineffective [Recovered/Resolved]
  - Arthralgia [Recovered/Resolved]
  - Muscular weakness [Recovering/Resolving]
  - Injection site pain [Recovered/Resolved]
  - Back pain [Recovered/Resolved]
  - Abdominal distension [Not Recovered/Not Resolved]
  - Arthritis [Recovering/Resolving]
  - Intervertebral disc compression [Recovered/Resolved]

NARRATIVE: CASE EVENT DATE: 20180101
